FAERS Safety Report 5331629-4 (Version None)
Quarter: 2007Q2

REPORT INFORMATION
  Report Type: 
  Country: None (occurrence: None)
  Receive Date: 20070522
  Receipt Date: 20070510
  Transmission Date: 20071010
  Serious: Yes (Other)
  Sender: FDA-Public Use
  Company Number: US-PFIZER INC-2007038785

PATIENT
  Sex: Female

DRUGS (2)
  1. CHANTIX [Suspect]
  2. ZOLOFT [Suspect]

REACTIONS (8)
  - AMNESIA [None]
  - ANGER [None]
  - DEPRESSION [None]
  - FALL [None]
  - FATIGUE [None]
  - MENTAL DISORDER [None]
  - NERVOUS SYSTEM DISORDER [None]
  - WEIGHT INCREASED [None]
